FAERS Safety Report 9163121 (Version 1)
Quarter: 2013Q1

REPORT INFORMATION
  Report Type: Spontaneous
  Country: US (occurrence: US)
  Receive Date: 20130314
  Receipt Date: 20130314
  Transmission Date: 20140127
  Serious: No
  Sender: FDA-Public Use
  Company Number: US-009507513-1303USA006852

PATIENT
  Age: 49 Year
  Sex: Female

DRUGS (3)
  1. CLARITIN [Suspect]
     Indication: NASAL CONGESTION
     Dosage: 10 MG, QAM
     Route: 048
  2. CLARITIN [Suspect]
     Indication: OROPHARYNGEAL PAIN
  3. CLARITIN [Suspect]
     Indication: SNEEZING

REACTIONS (2)
  - Lethargy [Unknown]
  - Feeling abnormal [Unknown]
